FAERS Safety Report 11779434 (Version 1)
Quarter: 2015Q4

REPORT INFORMATION
  Report Type: Spontaneous
  Country: FR (occurrence: FR)
  Receive Date: 20151125
  Receipt Date: 20151125
  Transmission Date: 20160304
  Serious: Yes (Death, Life-Threatening, Hospitalization)
  Sender: FDA-Public Use
  Company Number: FR-SA-2015SA189432

PATIENT
  Age: 1 Day
  Sex: Female
  Weight: .45 kg

DRUGS (3)
  1. ASPEGIC [Suspect]
     Active Substance: ASPIRIN DL-LYSINE
     Route: 064
     Dates: end: 201509
  2. DEPAKINE [Suspect]
     Active Substance: VALPROATE SODIUM
     Route: 064
     Dates: end: 201504
  3. LOVENOX [Suspect]
     Active Substance: ENOXAPARIN SODIUM
     Route: 064
     Dates: end: 201509

REACTIONS (2)
  - Foetal growth restriction [Not Recovered/Not Resolved]
  - Premature baby [Fatal]

NARRATIVE: CASE EVENT DATE: 20150916
